FAERS Safety Report 7539965-8 (Version None)
Quarter: 2011Q2

REPORT INFORMATION
  Report Type: 
  Country: None (occurrence: None)
  Receive Date: 20110603
  Receipt Date: 20110525
  Transmission Date: 20111010
  Serious: Yes (Hospitalization)
  Sender: FDA-Public Use
  Company Number: DKLU1070900

PATIENT
  Age: 51 Year
  Sex: Female

DRUGS (3)
  1. BENZOL (ALBENDAZOLE) [Concomitant]
  2. SABRIL [Suspect]
     Indication: EPILEPSY
     Dosage: 2000 MG MILLIGREAMS, 2 IN 1 D), ORAL
     Route: 048
     Dates: start: 20101001, end: 20110510
  3. TEGRETOL-XR [Concomitant]

REACTIONS (4)
  - CONVULSION [None]
  - FALL [None]
  - DIZZINESS [None]
  - DRUG INEFFECTIVE [None]
